FAERS Safety Report 25473800 (Version 1)
Quarter: 2025Q2

REPORT INFORMATION
  Report Type: Spontaneous
  Country: ES (occurrence: ES)
  Receive Date: 20250624
  Receipt Date: 20250624
  Transmission Date: 20250717
  Serious: Yes (Other)
  Sender: TAIHO ONCOLOGY INC
  Company Number: ES-TAIHOP-2025-006439

PATIENT
  Sex: Female

DRUGS (1)
  1. LYTGOBI [Suspect]
     Active Substance: FUTIBATINIB
     Indication: Cholangiocarcinoma
     Route: 048
     Dates: start: 202502

REACTIONS (5)
  - Mucocutaneous toxicity [Unknown]
  - Prescribed underdose [Unknown]
  - Off label use [Unknown]
  - Hyperphosphataemia [Unknown]
  - Nail dystrophy [Unknown]

NARRATIVE: CASE EVENT DATE: 20250201
